FAERS Safety Report 9382091 (Version 4)
Quarter: 2015Q1

REPORT INFORMATION
  Report Type: Spontaneous
  Country: JP (occurrence: JP)
  Receive Date: 20130703
  Receipt Date: 20150209
  Transmission Date: 20150721
  Serious: Yes (Hospitalization, Other)
  Sender: FDA-Public Use
  Company Number: JP-ELI_LILLY_AND_COMPANY-JP201306009062

PATIENT
  Age: 74 Year
  Sex: Male

DRUGS (9)
  1. ZYPREXA [Suspect]
     Active Substance: OLANZAPINE
     Indication: NAUSEA
  2. ZOLPIDEM [Concomitant]
     Active Substance: ZOLPIDEM\ZOLPIDEM TARTRATE
     Dosage: UNK
     Route: 065
  3. ALIMTA [Suspect]
     Active Substance: PEMETREXED DISODIUM
     Indication: LUNG ADENOCARCINOMA RECURRENT
     Dosage: 765 MG, UNK
     Route: 042
     Dates: start: 20120820
  4. PANVITAN                           /05664201/ [Concomitant]
     Indication: PRODUCT USED FOR UNKNOWN INDICATION
     Dosage: 1 G, UNK
     Route: 048
     Dates: start: 20120816
  5. QUETIAPINE [Concomitant]
     Active Substance: QUETIAPINE
     Indication: INSOMNIA
     Dosage: 25 MG, UNK
     Route: 048
     Dates: start: 20120919, end: 20120919
  6. ZYPREXA [Suspect]
     Active Substance: OLANZAPINE
     Indication: VOMITING
     Dosage: 5 MG, UNK
     Route: 048
     Dates: start: 20120917, end: 20120920
  7. CISPLATIN. [Concomitant]
     Active Substance: CISPLATIN
     Indication: LUNG ADENOCARCINOMA RECURRENT
     Dosage: 114 MG, UNK
     Route: 042
     Dates: start: 20120820
  8. VITAMIN B12 [Concomitant]
     Active Substance: CYANOCOBALAMIN
     Indication: PRODUCT USED FOR UNKNOWN INDICATION
     Dosage: 1 MG, UNK
     Route: 030
     Dates: start: 20120806
  9. ETIZOLAM [Concomitant]
     Active Substance: ETIZOLAM
     Dosage: 0.5 MG, UNK
     Route: 048
     Dates: end: 20120917

REACTIONS (12)
  - Epilepsy [Unknown]
  - Nausea [Recovered/Resolved]
  - Disturbance in attention [Unknown]
  - Hyponatraemia [Unknown]
  - Disorientation [Unknown]
  - Off label use [Unknown]
  - Nausea [Unknown]
  - Delirium [Recovered/Resolved]
  - Vomiting [Recovered/Resolved]
  - Insomnia [Recovered/Resolved]
  - Loss of consciousness [Recovered/Resolved]
  - Seizure [Recovered/Resolved]

NARRATIVE: CASE EVENT DATE: 20120917
